FAERS Safety Report 5069716-0 (Version None)
Quarter: 2006Q3

REPORT INFORMATION
  Report Type: 
  Country: None (occurrence: None)
  Receive Date: 20060803
  Receipt Date: 20060728
  Transmission Date: 20061208
  Serious: Yes (Other)
  Sender: FDA-Public Use
  Company Number: TR-BRISTOL-MYERS SQUIBB COMPANY-13461942

PATIENT
  Age: 15 Year
  Sex: Female

DRUGS (6)
  1. VINCRISTINE SULFATE [Suspect]
     Indication: NASOPHARYNGEAL CANCER
  2. CISPLATIN [Suspect]
     Indication: NASOPHARYNGEAL CANCER
  3. CYCLOPHOSPHAMIDE [Suspect]
     Indication: NASOPHARYNGEAL CANCER
  4. ETOPOSIDE [Suspect]
     Indication: NASOPHARYNGEAL CANCER
  5. DACTINOMYCIN [Suspect]
     Indication: NASOPHARYNGEAL CANCER
  6. RADIATION THERAPY [Suspect]
     Indication: NASOPHARYNGEAL CANCER
     Dosage: 6400CGY TO NASOPHARYNX + 5600CGY TO NECK

REACTIONS (2)
  - RENAL CELL CARCINOMA STAGE UNSPECIFIED [None]
  - TREATMENT RELATED SECONDARY MALIGNANCY [None]
